FAERS Safety Report 4685567-0 (Version None)
Quarter: 2005Q2

REPORT INFORMATION
  Report Type: 
  Country: None (occurrence: None)
  Receive Date: 20050517
  Receipt Date: 20040721
  Transmission Date: 20051028
  Serious: Yes (Hospitalization)
  Sender: FDA-Public Use
  Company Number: WAES 0407USA01790

PATIENT
  Age: 40 Year

DRUGS (1)
  1. CRIXIVAN [Suspect]
     Indication: HIV INFECTION
     Dosage: PO
     Route: 048

REACTIONS (1)
  - NEPHROLITHIASIS [None]
